FAERS Safety Report 18128421 (Version 1)
Quarter: 2020Q3

REPORT INFORMATION
  Report Type: Spontaneous
  Country: US (occurrence: US)
  Receive Date: 20200810
  Receipt Date: 20200810
  Transmission Date: 20201103
  Serious: No
  Sender: FDA-Public Use
  Company Number: US-SA-2020SA206632

PATIENT

DRUGS (4)
  1. PROAIR HFA [Concomitant]
     Active Substance: ALBUTEROL SULFATE
  2. DUPIXENT [Suspect]
     Active Substance: DUPILUMAB
     Indication: PULMONARY EOSINOPHILIA
     Dosage: 300 MG, QOW
     Route: 058
     Dates: start: 20200123
  3. ALBUTEROL [SALBUTAMOL] [Concomitant]
     Active Substance: ALBUTEROL
  4. CLIMARA [ESTRADIOL] [Concomitant]

REACTIONS (3)
  - Myalgia [Not Recovered/Not Resolved]
  - Bone pain [Not Recovered/Not Resolved]
  - Product use in unapproved indication [Unknown]

NARRATIVE: CASE EVENT DATE: 20200123
